FAERS Safety Report 6711342-9 (Version None)
Quarter: 2010Q2

REPORT INFORMATION
  Report Type: 
  Country: None (occurrence: None)
  Receive Date: 20100505
  Receipt Date: 20100427
  Transmission Date: 20101027
  Serious: Yes (Other)
  Sender: FDA-Public Use
  Company Number: DE-PFIZER INC-2010052737

PATIENT
  Age: 36 Year
  Sex: Female

DRUGS (2)
  1. ZELDOX [Suspect]
     Dosage: 80 MG, 2X/DAY
     Dates: start: 20100406
  2. DIAZEPAM [Concomitant]
     Dosage: 10 MG, 1X/DAY
     Dates: start: 20100420

REACTIONS (3)
  - HALLUCINATION [None]
  - NAUSEA [None]
  - VOMITING [None]
